FAERS Safety Report 13599087 (Version 1)
Quarter: 2017Q2

REPORT INFORMATION
  Report Type: Spontaneous
  Country: US (occurrence: US)
  Receive Date: 20170531
  Receipt Date: 20170531
  Transmission Date: 20170830
  Serious: Yes (Other)
  Sender: FDA-Public Use
  Company Number: US-BRISTOL-MYERS SQUIBB COMPANY-BMS-2017-046279

PATIENT
  Sex: Female

DRUGS (1)
  1. ABILIFY [Suspect]
     Active Substance: ARIPIPRAZOLE
     Indication: BIPOLAR DISORDER
     Dosage: 10 MG, QD
     Route: 065
     Dates: end: 201705

REACTIONS (8)
  - Crying [Unknown]
  - Back pain [Unknown]
  - Fibromyalgia [Unknown]
  - Depression [Unknown]
  - Anxiety [Unknown]
  - Abnormal behaviour [Unknown]
  - Malaise [Unknown]
  - Prescribed underdose [Unknown]
